FAERS Safety Report 7980524-0 (Version None)
Quarter: 2011Q4

REPORT INFORMATION
  Report Type: 
  Country: None (occurrence: None)
  Receive Date: 20111214
  Receipt Date: 20111209
  Transmission Date: 20120403
  Serious: Yes (Hospitalization)
  Sender: FDA-Public Use
  Company Number: FR-GLAXOSMITHKLINE-B0766163A

PATIENT
  Sex: Male

DRUGS (3)
  1. IRBESARTAN AND HYDROCHLOROTHIAZIDE [Concomitant]
     Route: 065
  2. CRESTOR [Concomitant]
     Route: 065
  3. OMACOR [Suspect]
     Indication: DYSLIPIDAEMIA
     Route: 048
     Dates: end: 20111014

REACTIONS (3)
  - OFF LABEL USE [None]
  - HAEMOPTYSIS [None]
  - COAGULATION TIME ABNORMAL [None]
